FAERS Safety Report 24270502 (Version 1)
Quarter: 2024Q3

REPORT INFORMATION
  Report Type: Report from Study
  Country: US (occurrence: US)
  Receive Date: 20240830
  Receipt Date: 20240830
  Transmission Date: 20241017
  Serious: Yes (Other)
  Sender: ABBVIE
  Company Number: US-ABBVIE-5898957

PATIENT
  Sex: Female

DRUGS (3)
  1. SKYRIZI [Suspect]
     Active Substance: RISANKIZUMAB-RZAA
     Indication: Psoriasis
     Dosage: WEEK 0?STRENGTH:150MG/ML
     Route: 058
     Dates: start: 20230501, end: 20230501
  2. SKYRIZI [Suspect]
     Active Substance: RISANKIZUMAB-RZAA
     Indication: Psoriatic arthropathy
     Dosage: WEEK 4?STRENGTH:150MG/ML
     Route: 058
     Dates: start: 20230529, end: 20230529
  3. SKYRIZI [Suspect]
     Active Substance: RISANKIZUMAB-RZAA
     Dosage: STRENGTH:150MG/ML
     Route: 058
     Dates: start: 202308

REACTIONS (4)
  - Pain [Unknown]
  - Arthritis [Unknown]
  - Intervertebral disc protrusion [Unknown]
  - Erythema [Unknown]

NARRATIVE: CASE EVENT DATE: 20240101
